FAERS Safety Report 17968617 (Version 1)
Quarter: 2020Q3

REPORT INFORMATION
  Report Type: Spontaneous
  Country: CA (occurrence: CA)
  Receive Date: 20200701
  Receipt Date: 20200701
  Transmission Date: 20201103
  Serious: Yes (Hospitalization)
  Sender: FDA-Public Use
  Company Number: CA-PFIZER INC-2020252287

PATIENT
  Sex: Male

DRUGS (10)
  1. INFLIXIMAB HOSPIRA [Suspect]
     Active Substance: INFLIXIMAB
     Dosage: 5 MG/KG, CYCLIC (1 EVERY 8 WEEKS)
     Route: 042
  2. PREDNISONE. [Suspect]
     Active Substance: PREDNISONE
     Dosage: 40 MG, 3X/DAY
     Route: 065
  3. HUMIRA [Suspect]
     Active Substance: ADALIMUMAB
     Indication: COLITIS ULCERATIVE
     Dosage: UNK
     Route: 058
  4. SOLU?MEDROL [Suspect]
     Active Substance: METHYLPREDNISOLONE SODIUM SUCCINATE
     Route: 042
  5. FENTANYL CITRATE. [Suspect]
     Active Substance: FENTANYL CITRATE
     Indication: COLONOSCOPY
     Route: 065
  6. ERGOCALCIFEROL. [Concomitant]
     Active Substance: ERGOCALCIFEROL
  7. PARA?AMINOSALICYLIC ACID [Suspect]
     Active Substance: AMINOSALICYLIC ACID
     Dosage: UNK
     Route: 065
  8. INFLIXIMAB HOSPIRA [Suspect]
     Active Substance: INFLIXIMAB
     Indication: COLITIS ULCERATIVE
     Dosage: 10 MG/KG
     Route: 042
  9. MIDAZOLAM HYDROCHLORIDE. [Suspect]
     Active Substance: MIDAZOLAM HYDROCHLORIDE
     Indication: COLONOSCOPY
     Route: 065
  10. PREDNISONE. [Suspect]
     Active Substance: PREDNISONE
     Dosage: 35 MG, CYCLIC (1 EVERY 3 DAYS)
     Route: 065

REACTIONS (4)
  - Colitis ulcerative [Unknown]
  - Drug ineffective [Unknown]
  - C-reactive protein abnormal [Unknown]
  - Frequent bowel movements [Unknown]
